FAERS Safety Report 20472817 (Version 1)
Quarter: 2022Q1

REPORT INFORMATION
  Report Type: Spontaneous
  Country: CN (occurrence: CN)
  Receive Date: 20220215
  Receipt Date: 20220215
  Transmission Date: 20220423
  Serious: Yes (Other)
  Sender: FDA-Public Use
  Company Number: CN-ABBOTT-2022A-1345722

PATIENT
  Age: 61 Year
  Sex: Female
  Weight: 41.5 kg

DRUGS (1)
  1. FENOFIBRATE [Suspect]
     Active Substance: FENOFIBRATE
     Indication: Hyperlipidaemia
     Route: 048
     Dates: start: 20211106, end: 20211208

REACTIONS (3)
  - Hepatic function abnormal [Recovered/Resolved]
  - Blood creatine phosphokinase increased [Recovered/Resolved]
  - Asthenia [Recovered/Resolved]

NARRATIVE: CASE EVENT DATE: 20220130
